FAERS Safety Report 8925826 (Version 3)
Quarter: 2012Q4

REPORT INFORMATION
  Report Type: Report from Study
  Country: CA (occurrence: CA)
  Receive Date: 20121126
  Receipt Date: 20121226
  Transmission Date: 20130627
  Serious: Yes (Other)
  Sender: FDA-Public Use
  Company Number: CA-ROCHE-1150356

PATIENT
  Age: 40 Year
  Sex: Female
  Weight: 107 kg

DRUGS (9)
  1. BEVACIZUMAB [Suspect]
     Indication: GLIOBLASTOMA
     Route: 042
     Dates: start: 20121024, end: 20121121
  2. DIPHENHYDRAMINE HCL [Suspect]
     Indication: PREMEDICATION
     Route: 048
     Dates: start: 20121024
  3. SOLU-MEDROL [Concomitant]
     Route: 042
  4. DECADRON [Concomitant]
  5. VALPROIC ACID [Concomitant]
  6. CLOBAZAM [Concomitant]
  7. KEPPRA [Concomitant]
  8. ACETAMINOPHEN [Concomitant]
     Indication: PREMEDICATION
     Route: 048
     Dates: start: 20121024
  9. METHYLPREDNISOLONE [Concomitant]
     Route: 042
     Dates: start: 20121024

REACTIONS (5)
  - Disease progression [Not Recovered/Not Resolved]
  - General physical health deterioration [Not Recovered/Not Resolved]
  - Hemiparesis [Unknown]
  - Flushing [Recovered/Resolved]
  - Somnolence [Not Recovered/Not Resolved]
